FAERS Safety Report 9049837 (Version 3)
Quarter: 2013Q1

REPORT INFORMATION
  Report Type: Report from Study
  Country: KR (occurrence: KR)
  Receive Date: 20130204
  Receipt Date: 20130217
  Transmission Date: 20140127
  Serious: Yes (Hospitalization)
  Sender: FDA-Public Use
  Company Number: KR-MERCK-1301KOR014815

PATIENT
  Age: 76 Year
  Sex: Male
  Weight: 71.5 kg

DRUGS (9)
  1. VORINOSTAT [Suspect]
     Indication: GASTRIC CANCER
     Dosage: 400 MG, QD
     Route: 048
     Dates: start: 20130115, end: 20130126
  2. CAPECITABINE [Suspect]
     Indication: GASTRIC CANCER
     Dosage: TOTAL DAILY DOSE 3500MG, BID
     Route: 048
     Dates: start: 20130115, end: 20130126
  3. CISPLATIN [Suspect]
     Indication: GASTRIC CANCER
     Dosage: TOTAL DIALY DOSE 80MG, QD
     Route: 042
     Dates: start: 20130115, end: 20130115
  4. DEXAMETHASONE [Concomitant]
     Indication: PROPHYLAXIS OF NAUSEA AND VOMITING
     Dosage: 8MG,DAILY
     Dates: start: 20130116, end: 20130118
  5. APREPITANT [Concomitant]
     Indication: PROPHYLAXIS OF NAUSEA AND VOMITING
     Dosage: 80MG,DAILY
     Dates: start: 20130116, end: 20130117
  6. RANITIDINE [Concomitant]
     Indication: GASTRITIS PROPHYLAXIS
     Dosage: 150MG,DAILY
     Dates: start: 20130116, end: 20130118
  7. LOZALTAN PLUS [Concomitant]
     Indication: HYPERTENSION
     Dosage: 50MG,DAILY
     Dates: start: 1988, end: 20130126
  8. SIGMART [Concomitant]
     Indication: HYPERTENSION
     Dosage: 5MG,DAILY
     Dates: start: 1988, end: 20130126
  9. CARVEDILOL [Concomitant]
     Indication: HYPERTENSION
     Dosage: 25MG,DAILY
     Dates: start: 1988, end: 20130126

REACTIONS (2)
  - Renal failure [Recovered/Resolved]
  - Gastroenteritis [Recovered/Resolved]
